FAERS Safety Report 8139426 (Version 4)
Quarter: 2013Q3

REPORT INFORMATION
  Report Type: Report from Study
  Country: US (occurrence: US)
  Receive Date: 20110916
  Receipt Date: 20130828
  Transmission Date: 20140515
  Serious: Yes (Hospitalization, Other)
  Sender: FDA-Public Use
  Company Number: US-NAPPMUNDI-USA-2011-0074568

PATIENT
  Age: 40 Year
  Sex: Female
  Weight: 99 kg

DRUGS (4)
  1. OXYCONTIN (NDA 22-272) [Suspect]
     Indication: BACK PAIN
     Dosage: 120 MG, Q8H
     Route: 048
  2. OXYCONTIN (NDA 22-272) [Suspect]
     Indication: PAIN IN EXTREMITY
     Dosage: 120 MG, Q8H
     Route: 048
  3. OXYCONTIN (NDA 22-272) [Suspect]
     Indication: NECK PAIN
  4. OXYCONTIN (NDA 22-272) [Suspect]
     Indication: MUSCULOSKELETAL PAIN

REACTIONS (13)
  - Pneumonia [Recovered/Resolved]
  - Gastrointestinal infection [Unknown]
  - Sepsis [Recovered/Resolved]
  - Intervertebral disc protrusion [Unknown]
  - Hallucination [Recovered/Resolved]
  - Drug withdrawal syndrome [Recovered/Resolved]
  - Mobility decreased [Unknown]
  - Activities of daily living impaired [Unknown]
  - Pain [Unknown]
  - Mental impairment [Unknown]
  - Dyspnoea [Unknown]
  - Pruritus [Unknown]
  - Contusion [Unknown]
